FAERS Safety Report 19690312 (Version 1)
Quarter: 2021Q3

REPORT INFORMATION
  Report Type: Spontaneous
  Country: CA (occurrence: CA)
  Receive Date: 20210812
  Receipt Date: 20210812
  Transmission Date: 20211014
  Serious: Yes (Other)
  Sender: FDA-Public Use
  Company Number: CA-TEVA-2021-CA-1939574

PATIENT
  Sex: Male
  Weight: 3 kg

DRUGS (5)
  1. METOPROLOL. [Suspect]
     Active Substance: METOPROLOL
     Indication: FOETAL EXPOSURE DURING PREGNANCY
     Route: 064
  2. METOPROLOL. [Suspect]
     Active Substance: METOPROLOL
     Route: 064
  3. METOPROLOL. [Suspect]
     Active Substance: METOPROLOL
     Route: 064
  4. METOPROLOL. [Suspect]
     Active Substance: METOPROLOL
     Route: 064
  5. METOPROLOL. [Suspect]
     Active Substance: METOPROLOL
     Route: 064

REACTIONS (2)
  - Foetal exposure during pregnancy [Unknown]
  - Premature baby [Unknown]
